FAERS Safety Report 8607569 (Version 2)
Quarter: 2012Q4

REPORT INFORMATION
  Report Type: 
  Country: IT (occurrence: IT)
  Receive Date: 20120611
  Receipt Date: 20121025
  Transmission Date: 20130627
  Serious: Yes (Hospitalization)
  Sender: FDA-Public Use
  Company Number: PHHY2012IT048669

PATIENT
  Age: 79 Year
  Sex: Male

DRUGS (7)
  1. GLIVEC [Suspect]
     Indication: GASTROINTESTINAL STROMAL TUMOUR
     Dosage: 400 mg, Daily
     Dates: start: 20041022
  2. LASIX [Concomitant]
  3. CONGESCOR [Concomitant]
  4. LIMPIDEX [Concomitant]
  5. CARDIRENE [Concomitant]
  6. AVODART [Concomitant]
  7. PRITOR [Concomitant]

REACTIONS (2)
  - Bladder cancer [Recovered/Resolved]
  - Second primary malignancy [Recovered/Resolved]
